FAERS Safety Report 10121582 (Version 2)
Quarter: 2015Q1

REPORT INFORMATION
  Report Type: Other
  Country: US (occurrence: US)
  Receive Date: 20140427
  Receipt Date: 20150206
  Transmission Date: 20150720
  Serious: Yes (Hospitalization, Other)
  Sender: FDA-Public Use
  Company Number: US-GSKPPD-2014GSK027880

PATIENT
  Age: 49 Year
  Sex: Female

DRUGS (8)
  1. DIGOXIN. [Concomitant]
     Active Substance: DIGOXIN
     Route: 048
  2. LASIX [Concomitant]
     Active Substance: FUROSEMIDE
  3. LOPRESSOR [Concomitant]
     Active Substance: METOPROLOL TARTRATE
     Route: 048
  4. AVANDIA [Suspect]
     Active Substance: ROSIGLITAZONE MALEATE
     Indication: DIABETES MELLITUS
     Route: 048
  5. UNIRETIC [Concomitant]
     Active Substance: HYDROCHLOROTHIAZIDE\MOEXIPRIL HYDROCHLORIDE
     Dates: end: 200306
  6. TOPROL XL [Concomitant]
     Active Substance: METOPROLOL SUCCINATE
     Dates: end: 200306
  7. ASPIRIN. [Concomitant]
     Active Substance: ASPIRIN
     Route: 048
  8. PRAVACHOL [Concomitant]
     Active Substance: PRAVASTATIN SODIUM
     Route: 048

REACTIONS (2)
  - Cardiac failure congestive [Unknown]
  - Vascular graft [Recovered/Resolved]

NARRATIVE: CASE EVENT DATE: 20030624
